FAERS Safety Report 5364947-4 (Version None)
Quarter: 2007Q2

REPORT INFORMATION
  Report Type: 
  Country: None (occurrence: None)
  Receive Date: 20070621
  Receipt Date: 20070608
  Transmission Date: 20071010
  Serious: Yes (Other)
  Sender: FDA-Public Use
  Company Number: CH-BAYER-200713176GDS

PATIENT
  Age: 71 Year
  Sex: Male
  Weight: 60 kg

DRUGS (7)
  1. ASPIRIN [Suspect]
     Indication: DRUG USE FOR UNKNOWN INDICATION
     Route: 065
     Dates: end: 20061201
  2. AGOPTON [Suspect]
     Indication: GASTROOESOPHAGEAL REFLUX DISEASE
     Route: 048
     Dates: end: 20070320
  3. SERTRALINE [Suspect]
     Indication: DRUG USE FOR UNKNOWN INDICATION
     Route: 065
     Dates: end: 20070327
  4. SIMCORA [Concomitant]
     Indication: DRUG USE FOR UNKNOWN INDICATION
     Route: 065
     Dates: end: 20070327
  5. BLOPRESS PLUS [Concomitant]
     Indication: DRUG USE FOR UNKNOWN INDICATION
     Route: 065
     Dates: end: 20061201
  6. MEPHANOL [Concomitant]
     Indication: DRUG USE FOR UNKNOWN INDICATION
     Route: 065
     Dates: end: 20061201
  7. TILUR [Concomitant]
     Indication: PAIN
     Route: 048

REACTIONS (2)
  - COLITIS MICROSCOPIC [None]
  - DIARRHOEA [None]
